FAERS Safety Report 8225340-X (Version None)
Quarter: 2012Q1

REPORT INFORMATION
  Report Type: 
  Country: None (occurrence: None)
  Receive Date: 20120321
  Receipt Date: 20120131
  Transmission Date: 20120608
  Serious: Yes (Other)
  Sender: FDA-Public Use
  Company Number: JP-GLAXOSMITHKLINE-B0779163A

PATIENT
  Sex: Male

DRUGS (7)
  1. LEXIN [Suspect]
     Indication: EPILEPSY
     Dosage: 1000MG PER DAY
     Route: 048
     Dates: start: 20100426, end: 20120129
  2. LEXIN [Suspect]
     Dosage: 650MG PER DAY
     Route: 048
     Dates: start: 20120130, end: 20120223
  3. VALPROATE SODIUM [Concomitant]
     Indication: EPILEPSY
     Dosage: 800MG PER DAY
     Route: 048
     Dates: start: 20100607, end: 20110509
  4. LAMICTAL [Suspect]
     Indication: EPILEPSY
     Dosage: 225MG PER DAY
     Route: 048
     Dates: start: 20100823, end: 20100913
  5. QUETIAPINE FUMARATE [Concomitant]
     Indication: MENTAL DISORDER
     Route: 048
  6. LAMICTAL [Suspect]
     Dosage: 200MG PER DAY
     Route: 048
     Dates: start: 20101004, end: 20120130
  7. VALPROATE SODIUM [Concomitant]
     Dosage: 1000MG PER DAY
     Route: 048
     Dates: start: 20110711, end: 20111221

REACTIONS (7)
  - DERMATITIS [None]
  - ASPARTATE AMINOTRANSFERASE INCREASED [None]
  - BLOOD ALKALINE PHOSPHATASE INCREASED [None]
  - ALANINE AMINOTRANSFERASE INCREASED [None]
  - GAMMA-GLUTAMYLTRANSFERASE INCREASED [None]
  - HEPATIC FUNCTION ABNORMAL [None]
  - BLOOD LACTATE DEHYDROGENASE INCREASED [None]
